FAERS Safety Report 4711751-3 (Version None)
Quarter: 2005Q2

REPORT INFORMATION
  Report Type: 
  Country: None (occurrence: None)
  Receive Date: 20050629
  Receipt Date: 20050426
  Transmission Date: 20051028
  Serious: No
  Sender: FDA-Public Use
  Company Number: 05P-163-0298468-00

PATIENT
  Age: 47 Year
  Sex: Female
  Weight: 58.0604 kg

DRUGS (8)
  1. HUMIRA [Suspect]
     Indication: RHEUMATOID ARTHRITIS
     Dosage: 40 MG, 1 IN 2 WK, SUBCUTANEOUS
     Route: 058
     Dates: start: 20030701
  2. PREDNISONE [Concomitant]
  3. HYDROXYCHLOROQUINE PHOSPHATE [Concomitant]
  4. ACARBOSE [Concomitant]
  5. FORACAL [Concomitant]
  6. FORTEO [Concomitant]
  7. VITAMINS [Concomitant]
  8. CALCIUM GLUCONATE [Concomitant]

REACTIONS (4)
  - ASTHENIA [None]
  - CARDIAC VALVE DISEASE [None]
  - CONVULSION [None]
  - SUDDEN ONSET OF SLEEP [None]
